FAERS Safety Report 9100585 (Version 5)
Quarter: 2013Q3

REPORT INFORMATION
  Report Type: Spontaneous
  Country: US (occurrence: US)
  Receive Date: 20130215
  Receipt Date: 20130820
  Transmission Date: 20140515
  Serious: No
  Sender: FDA-Public Use
  Company Number: US-PFIZER INC-2013057829

PATIENT
  Age: 59 Year
  Sex: Female
  Weight: 88.44 kg

DRUGS (8)
  1. CELEBREX [Suspect]
     Indication: BACK PAIN
     Dosage: 200 MG, DAILY
  2. CELEBREX [Suspect]
     Indication: MOVEMENT DISORDER
     Dosage: 200 MG, 2X/DAY
  3. CELEBREX [Suspect]
     Dosage: 200 MG, 2X/DAY
  4. NEURONTIN [Suspect]
     Dosage: 600 MG, 2X/DAY
  5. METFORMIN [Concomitant]
     Indication: DIABETES MELLITUS
     Dosage: UNK, 1X/DAY
  6. BENICAR [Concomitant]
     Indication: HYPERTENSION
     Dosage: UNK, 1X/DAY
  7. TYROSOL [Concomitant]
     Dosage: UNK
  8. PERCOCET [Concomitant]
     Dosage: UNK

REACTIONS (8)
  - Blood cholesterol increased [Unknown]
  - Gait disturbance [Unknown]
  - Fall [Unknown]
  - Arthralgia [Unknown]
  - Musculoskeletal stiffness [Unknown]
  - Paraesthesia [Unknown]
  - Photopsia [Unknown]
  - Activities of daily living impaired [Unknown]
